FAERS Safety Report 8602578-0 (Version None)
Quarter: 2012Q3

REPORT INFORMATION
  Report Type: 
  Country: None (occurrence: None)
  Receive Date: 20120817
  Receipt Date: 20120814
  Transmission Date: 20120928
  Serious: Yes (Hospitalization)
  Sender: FDA-Public Use
  Company Number: PHEH2012US015676

PATIENT
  Sex: Female

DRUGS (1)
  1. GILENYA [Suspect]
     Indication: MULTIPLE SCLEROSIS
     Dosage: 0.5 MG, QD
     Route: 048
     Dates: start: 20120730, end: 20120730

REACTIONS (5)
  - ECG SIGNS OF MYOCARDIAL ISCHAEMIA [None]
  - TANDEM GAIT TEST ABNORMAL [None]
  - POSITIVE ROMBERGISM [None]
  - TREMOR [None]
  - ELECTROCARDIOGRAM ABNORMAL [None]
